FAERS Safety Report 9157814 (Version 1)
Quarter: 2013Q1

REPORT INFORMATION
  Report Type: Spontaneous
  Country: US (occurrence: US)
  Receive Date: 20130312
  Receipt Date: 20130312
  Transmission Date: 20140127
  Serious: No
  Sender: FDA-Public Use
  Company Number: US-009507513-1207USA000361

PATIENT
  Age: 18 Year
  Sex: Female

DRUGS (8)
  1. GARDASIL [Suspect]
     Indication: PROPHYLAXIS
     Dates: start: 20120613, end: 20120613
  2. SINGULAIR [Suspect]
     Indication: ASTHMA
     Dosage: UNK UNK, PRN
     Route: 048
  3. VITAMINS (UNSPECIFIED) [Concomitant]
     Indication: PRENATAL CARE
     Dosage: UNK, QD
     Dates: start: 20120702
  4. ZOLOFT [Concomitant]
     Indication: ANXIETY
     Dosage: 50 MG, QD
     Dates: start: 20120705
  5. ADVAIR [Concomitant]
     Indication: ASTHMA
     Dosage: UNK, PRN
  6. ALBUTEROL [Concomitant]
     Indication: ASTHMA
  7. ALLEGRA [Concomitant]
     Indication: ASTHMA
     Dosage: UNK, PRN
  8. IRON (UNSPECIFIED) [Concomitant]
     Indication: ANAEMIA
     Dosage: UNK, QD
     Dates: start: 20120815

REACTIONS (2)
  - Polymorphic eruption of pregnancy [Unknown]
  - Exposure during pregnancy [Recovered/Resolved]
